FAERS Safety Report 12654278 (Version 1)
Quarter: 2016Q3

REPORT INFORMATION
  Report Type: Spontaneous
  Country: US (occurrence: US)
  Receive Date: 20160816
  Receipt Date: 20160816
  Transmission Date: 20161109
  Serious: No
  Sender: FDA-Public Use
  Company Number: US-BEH-2016072285

PATIENT
  Sex: Female
  Weight: 48.53 kg

DRUGS (9)
  1. HIZENTRA [Suspect]
     Active Substance: HUMAN IMMUNOGLOBULIN G
     Dosage: 6 G, QW
     Route: 058
     Dates: start: 20151105
  2. ACETAMINOPHEN. [Concomitant]
     Active Substance: ACETAMINOPHEN
  3. VITAMIN B12 [Concomitant]
     Active Substance: CYANOCOBALAMIN
  4. HIZENTRA [Suspect]
     Active Substance: HUMAN IMMUNOGLOBULIN G
     Indication: HYPOGAMMAGLOBULINAEMIA
     Route: 058
  5. DIPHENHYDRAMINE. [Concomitant]
     Active Substance: DIPHENHYDRAMINE
  6. EPIPEN [Concomitant]
     Active Substance: EPINEPHRINE
  7. LMX                                /00033401/ [Concomitant]
  8. HIZENTRA [Suspect]
     Active Substance: HUMAN IMMUNOGLOBULIN G
     Dosage: UNK
     Route: 058
  9. IBUPROFEN. [Concomitant]
     Active Substance: IBUPROFEN

REACTIONS (1)
  - Pharyngitis streptococcal [Unknown]
